FAERS Safety Report 5065953-X (Version None)
Quarter: 2006Q3

REPORT INFORMATION
  Report Type: 
  Country: None (occurrence: None)
  Receive Date: 20060728
  Receipt Date: 20060728
  Transmission Date: 20061208
  Serious: Yes (Hospitalization)
  Sender: FDA-Public Use
  Company Number: None

PATIENT
  Age: 39 Year
  Sex: Female
  Weight: 86 kg

DRUGS (7)
  1. OXYCONTIN [Suspect]
     Indication: PAIN
     Dosage: 80 MG PO BID
     Route: 048
  2. ZOLPIDEM [Suspect]
     Indication: INSOMNIA
     Dosage: 5 MG PO QHS
     Route: 048
  3. MARINOL [Concomitant]
  4. OXYCONTIN [Concomitant]
  5. ROXICODONE [Concomitant]
  6. LUNESTA [Concomitant]
  7. AMBIEN [Concomitant]

REACTIONS (5)
  - ACCIDENTAL OVERDOSE [None]
  - DYSARTHRIA [None]
  - LOSS OF CONSCIOUSNESS [None]
  - MENTAL STATUS CHANGES [None]
  - SOMNOLENCE [None]
